FAERS Safety Report 6130011-X (Version None)
Quarter: 2009Q1

REPORT INFORMATION
  Report Type: 
  Country: None (occurrence: None)
  Receive Date: 20090323
  Receipt Date: 20090323
  Transmission Date: 20090719
  Serious: Yes (Other)
  Sender: FDA-Public Use
  Company Number: None

PATIENT
  Age: 49 Year
  Sex: Female
  Weight: 63.5036 kg

DRUGS (1)
  1. BONIVA [Suspect]
     Indication: BONE DENSITY DECREASED
     Dosage: 150 MG TABLET ONCE A MONTH PO
     Route: 048
     Dates: start: 20080601, end: 20090301

REACTIONS (2)
  - INSOMNIA [None]
  - PAIN IN JAW [None]
